FAERS Safety Report 5958293-5 (Version None)
Quarter: 2008Q4

REPORT INFORMATION
  Report Type: 
  Country: None (occurrence: None)
  Receive Date: 20081107
  Receipt Date: 20081031
  Transmission Date: 20090506
  Serious: Yes (Hospitalization)
  Sender: FDA-Public Use
  Company Number: 2008BI024791

PATIENT
  Age: 64 Year
  Sex: Female
  Weight: 76.2043 kg

DRUGS (9)
  1. AVONEX [Suspect]
     Indication: MULTIPLE SCLEROSIS
     Dosage: 30 UG;QW;IM 30 UG;QW;IM
     Route: 030
     Dates: start: 19961201, end: 20040901
  2. AVONEX [Suspect]
     Indication: MULTIPLE SCLEROSIS
     Dosage: 30 UG;QW;IM 30 UG;QW;IM
     Route: 030
     Dates: start: 20051101
  3. ATENOLOL [Concomitant]
  4. TRAMADOL HCL [Concomitant]
  5. PROZAC [Concomitant]
  6. DIAZEPAM [Concomitant]
  7. SYNTHROID [Concomitant]
  8. VITAMIN B-12 [Concomitant]
  9. LANTUS [Concomitant]

REACTIONS (12)
  - ABDOMINAL PAIN UPPER [None]
  - APLASIA PURE RED CELL [None]
  - FATIGUE [None]
  - GAIT DISTURBANCE [None]
  - GASTROOESOPHAGEAL REFLUX DISEASE [None]
  - HYPOAESTHESIA [None]
  - INSOMNIA [None]
  - IRON DEFICIENCY ANAEMIA [None]
  - MALABSORPTION [None]
  - SMALL INTESTINAL OBSTRUCTION [None]
  - ULCER [None]
  - WEIGHT DECREASED [None]
